FAERS Safety Report 10796417 (Version 1)
Quarter: 2015Q1

REPORT INFORMATION
  Report Type: Report from Study
  Country: PR (occurrence: PR)
  Receive Date: 20150216
  Receipt Date: 20150216
  Transmission Date: 20150721
  Serious: No
  Sender: FDA-Public Use
  Company Number: PR-ABBVIE-14K-131-1237865-00

PATIENT
  Sex: Male

DRUGS (2)
  1. LIZINOPRIL [Concomitant]
     Indication: PRODUCT USED FOR UNKNOWN INDICATION
     Dosage: 10/12.5MG
  2. HUMIRA [Suspect]
     Active Substance: ADALIMUMAB
     Indication: PSORIASIS
     Route: 058
     Dates: start: 20140501

REACTIONS (2)
  - Insomnia [Not Recovered/Not Resolved]
  - Pruritus generalised [Not Recovered/Not Resolved]
